FAERS Safety Report 5125054-9 (Version None)
Quarter: 2006Q4

REPORT INFORMATION
  Report Type: 
  Country: None (occurrence: None)
  Receive Date: 20061011
  Receipt Date: 20060724
  Transmission Date: 20070319
  Serious: Yes (Hospitalization, Other)
  Sender: FDA-Public Use
  Company Number: US-BRISTOL-MYERS SQUIBB COMPANY-13451646

PATIENT
  Age: 84 Year
  Sex: Male

DRUGS (5)
  1. CETUXIMAB [Suspect]
     Indication: NON-SMALL CELL LUNG CANCER
     Route: 042
     Dates: start: 20060713, end: 20060713
  2. CARBOPLATIN [Suspect]
     Indication: NON-SMALL CELL LUNG CANCER
     Route: 042
     Dates: start: 20060713, end: 20060713
  3. TAXOTERE [Suspect]
     Indication: NON-SMALL CELL LUNG CANCER
     Route: 042
     Dates: start: 20060713, end: 20060713
  4. PROSCAR [Concomitant]
  5. LEVOTHROID [Concomitant]

REACTIONS (2)
  - NEUTROPENIA [None]
  - RENAL FAILURE ACUTE [None]
